FAERS Safety Report 18522865 (Version 1)
Quarter: 2020Q4

REPORT INFORMATION
  Report Type: Spontaneous
  Country: US (occurrence: US)
  Receive Date: 20201119
  Receipt Date: 20201119
  Transmission Date: 20210114
  Serious: Yes (Other)
  Sender: FDA-Public Use
  Company Number: None

PATIENT
  Age: 33 Month
  Sex: Female
  Weight: 13.05 kg

DRUGS (4)
  1. MARY RUTH^S DAILY VITAMIN [Concomitant]
  2. CLARITIN [Concomitant]
     Active Substance: LORATADINE
  3. MIRALAX [Suspect]
     Active Substance: POLYETHYLENE GLYCOL 3350
     Indication: CONSTIPATION
     Dates: start: 20201001, end: 20201101
  4. ASMANEX [Concomitant]
     Active Substance: MOMETASONE FUROATE

REACTIONS (2)
  - Nervous system disorder [None]
  - Tic [None]

NARRATIVE: CASE EVENT DATE: 20201028
